FAERS Safety Report 5165851-7 (Version None)
Quarter: 2006Q4

REPORT INFORMATION
  Report Type: 
  Country: None (occurrence: None)
  Receive Date: 20061128
  Receipt Date: 20061018
  Transmission Date: 20070319
  Serious: Yes (Other)
  Sender: FDA-Public Use
  Company Number: 2006SP000173

PATIENT
  Age: 52 Year
  Sex: Male

DRUGS (3)
  1. PEGETRON (PEGINTERFERON ALFA-2B W/RIBAVIRIN) (PEGYLATED INTERFERON ALF [Suspect]
     Dosage: SEE IMAGE
  2. IMOVANE [Concomitant]
  3. HYDROXYZINE [Concomitant]

REACTIONS (3)
  - CATARACT SUBCAPSULAR [None]
  - EYE HAEMORRHAGE [None]
  - RETINAL EXUDATES [None]
